FAERS Safety Report 8973505 (Version 1)
Quarter: 2012Q4

REPORT INFORMATION
  Report Type: 
  Country: US (occurrence: US)
  Receive Date: 20121218
  Receipt Date: 20121218
  Transmission Date: 20130627
  Serious: No
  Sender: FDA-Public Use
  Company Number: US-BRISTOL-MYERS SQUIBB COMPANY-16829749

PATIENT
  Age: 49 Year
  Sex: Male

DRUGS (5)
  1. ABILIFY [Suspect]
     Dates: start: 201207
  2. WELLBUTRIN [Suspect]
  3. PAXIL [Suspect]
     Dosage: 1DF: 30 UNS
  4. TRAZODONE HCL [Suspect]
  5. DEPAKOTE [Suspect]

REACTIONS (1)
  - Nightmare [Unknown]
